FAERS Safety Report 22060513 (Version 1)
Quarter: 2023Q1

REPORT INFORMATION
  Report Type: Other
  Country: CN (occurrence: None)
  Receive Date: 20230303
  Receipt Date: 20230303
  Transmission Date: 20230417
  Serious: Yes (Other)
  Sender: FDA-Public Use
  Company Number: CN-ROCHE-3300026

PATIENT

DRUGS (3)
  1. BEVACIZUMAB [Suspect]
     Active Substance: BEVACIZUMAB
     Indication: Non-small cell lung cancer
     Dosage: DILUTED WITH 100 ML 0.9% SODIUM CHLORIDE INJECTION FOR 4 CONSECUTIVE CYCLES
     Route: 041
  2. PACLITAXEL [Suspect]
     Active Substance: PACLITAXEL
     Indication: Non-small cell lung cancer
     Dosage: 135-175MG/M2; DILUTED WITH 500 ML 0.9% SODIUM CHLORIDE INJECTION, ON DAY 1, 21 FOR 4 CYCLES.
     Route: 041
  3. CARBOPLATIN [Suspect]
     Active Substance: CARBOPLATIN
     Indication: Non-small cell lung cancer
     Dosage: 300-400 MG/M2; ADDED TO 300 ML 5% GLUCOSE INJECTION, ON DAY 1, 21 FOR 4 CYCLES.
     Route: 041

REACTIONS (1)
  - Myelosuppression [Unknown]
